FAERS Safety Report 8020537-6 (Version None)
Quarter: 2012Q1

REPORT INFORMATION
  Report Type: 
  Country: None (occurrence: None)
  Receive Date: 20120103
  Receipt Date: 20111228
  Transmission Date: 20120608
  Serious: Yes (Hospitalization)
  Sender: FDA-Public Use
  Company Number: US-ROCHE-1026226

PATIENT
  Sex: Female
  Weight: 59.02 kg

DRUGS (7)
  1. GABAPENTIN [Suspect]
     Indication: BACK PAIN
     Dates: start: 20110301
  2. OXYCODONE [Suspect]
     Indication: BACK PAIN
     Dates: start: 20110301
  3. HYDROMORPHONE HYDROCHLORIDE [Suspect]
     Indication: BACK PAIN
     Dates: start: 20110301
  4. ACETAMINOPHEN [Suspect]
     Indication: BACK PAIN
     Dates: start: 20110301
  5. DIAZEPAM [Suspect]
     Indication: BACK PAIN
  6. IBUPROFEN [Suspect]
     Indication: BACK PAIN
     Dates: start: 20110301
  7. VARENICLINE TARTRATE [Suspect]
     Indication: EX-TOBACCO USER
     Dates: start: 20111015

REACTIONS (5)
  - MALAISE [None]
  - BACK PAIN [None]
  - NAUSEA [None]
  - DRUG INEFFECTIVE [None]
  - ABDOMINAL DISCOMFORT [None]
